FAERS Safety Report 5657114-8 (Version None)
Quarter: 2008Q1

REPORT INFORMATION
  Report Type: 
  Country: None (occurrence: None)
  Receive Date: 20080310
  Receipt Date: 20080228
  Transmission Date: 20080703
  Serious: Yes (Other)
  Sender: FDA-Public Use
  Company Number: US-JNJFOC-20080300292

PATIENT
  Sex: Female
  Weight: 88.45 kg

DRUGS (3)
  1. TOPAMAX [Suspect]
     Indication: MIGRAINE PROPHYLAXIS
     Dosage: 25-50 MG/DAY
     Route: 048
  2. SYNTHROID [Concomitant]
     Indication: HYPOTHYROIDISM
  3. EXCEDRIN [Concomitant]
     Indication: MIGRAINE

REACTIONS (3)
  - HEART RATE IRREGULAR [None]
  - INSOMNIA [None]
  - URTICARIA [None]
